FAERS Safety Report 16012791 (Version 3)
Quarter: 2020Q1

REPORT INFORMATION
  Report Type: Report from Study
  Country: US (occurrence: US)
  Receive Date: 20190227
  Receipt Date: 20200304
  Transmission Date: 20200409
  Serious: Yes (Other)
  Sender: FDA-Public Use
  Company Number: US-ROCHE-2272880

PATIENT
  Age: 77 Year
  Sex: Male
  Weight: 68.1 kg

DRUGS (2)
  1. OCREVUS [Suspect]
     Active Substance: OCRELIZUMAB
     Indication: PRIMARY PROGRESSIVE MULTIPLE SCLEROSIS
     Dosage: NEXT OCRELIZUMAB INFUSION: 26/JUL/2017
     Route: 065
     Dates: start: 201607
  2. LISINOPRIL. [Concomitant]
     Active Substance: LISINOPRIL
     Indication: BLOOD PRESSURE MEASUREMENT
     Dosage: ONGOING: YES
     Route: 065

REACTIONS (3)
  - Nasopharyngitis [Recovered/Resolved]
  - Urinary tract infection [Unknown]
  - Pneumonia [Unknown]

NARRATIVE: CASE EVENT DATE: 201901
